FAERS Safety Report 15555143 (Version 1)
Quarter: 2018Q4

REPORT INFORMATION
  Report Type: Spontaneous
  Country: US (occurrence: US)
  Receive Date: 20181026
  Receipt Date: 20181026
  Transmission Date: 20190205
  Serious: Yes (Other)
  Sender: FDA-Public Use
  Company Number: US-TORRENT-00007083

PATIENT
  Age: 16 Year
  Sex: Female

DRUGS (5)
  1. MELATONIN [Concomitant]
     Active Substance: MELATONIN
     Indication: DYSSOMNIA
     Dosage: UNKNOWN
  2. BUPROPION. [Concomitant]
     Active Substance: BUPROPION
     Indication: MAJOR DEPRESSION
     Dosage: QAM (EVERY MORNING)
  3. HYDROXYZINE [Concomitant]
     Active Substance: HYDROXYZINE HYDROCHLORIDE
     Indication: ANXIETY DISORDER
     Dosage: UNKNOWN
  4. LORAZEPAM. [Concomitant]
     Active Substance: LORAZEPAM
     Indication: PANIC ATTACK
     Dosage: 1MG DAILY ON AN AS NEEDED BASIS
  5. SERTRALINE [Suspect]
     Active Substance: SERTRALINE HYDROCHLORIDE
     Indication: PANIC ATTACK
     Dosage: UNKNOWN

REACTIONS (1)
  - Electrocardiogram QT prolonged [Recovering/Resolving]
